FAERS Safety Report 16449969 (Version 1)
Quarter: 2019Q3

REPORT INFORMATION
  Report Type: Spontaneous
  Country: US (occurrence: US)
  Receive Date: 20190618
  Receipt Date: 20190618
  Transmission Date: 20191004
  Serious: Yes (Other)
  Sender: FDA-Public Use
  Company Number: None

PATIENT

DRUGS (5)
  1. CISATRACURIUM. [Suspect]
     Active Substance: CISATRACURIUM
     Dosage: ?          OTHER FREQUENCY:SURGERY USE;?
     Route: 042
  2. SUCCINYLCHOLINE [Concomitant]
     Active Substance: SUCCINYLCHOLINE
  3. VECURONIUM [Concomitant]
     Active Substance: VECURONIUM BROMIDE
  4. SUCCINYLCHOLINE [Suspect]
     Active Substance: SUCCINYLCHOLINE
     Dosage: ?          OTHER FREQUENCY:SURGERY USE;?
     Route: 042
  5. CISATRACURIUM. [Concomitant]
     Active Substance: CISATRACURIUM

REACTIONS (1)
  - Product packaging confusion [None]
